FAERS Safety Report 18957985 (Version 2)
Quarter: 2021Q1

REPORT INFORMATION
  Report Type: Report from Study
  Country: US (occurrence: US)
  Receive Date: 20210302
  Receipt Date: 20210317
  Transmission Date: 20210420
  Serious: Yes (Hospitalization, Other)
  Sender: FDA-Public Use
  Company Number: US-BAYER-2021-086217

PATIENT
  Age: 73 Year
  Sex: Female
  Weight: 71.2 kg

DRUGS (5)
  1. TREPROSTINIL SODIUM [Suspect]
     Active Substance: TREPROSTINIL SODIUM
     Indication: PULMONARY ARTERIAL HYPERTENSION
     Dosage: 0.6 MG/ML
     Dates: start: 20170215
  2. TRACLEER [Concomitant]
     Active Substance: BOSENTAN
  3. UPTRAVI [Suspect]
     Active Substance: SELEXIPAG
     Indication: PRODUCT USED FOR UNKNOWN INDICATION
  4. TREPROSTINIL SODIUM [Suspect]
     Active Substance: TREPROSTINIL SODIUM
     Indication: PULMONARY ARTERIAL HYPERTENSION
     Dosage: 60?120 ?G (10?20BREATHS) QID
     Route: 055
  5. ADEMPAS [Suspect]
     Active Substance: RIOCIGUAT
     Indication: PRODUCT USED FOR UNKNOWN INDICATION

REACTIONS (5)
  - Syncope [Not Recovered/Not Resolved]
  - Gastrointestinal haemorrhage [None]
  - Blood disorder [None]
  - Anaemia [None]
  - Haemoglobin decreased [Unknown]

NARRATIVE: CASE EVENT DATE: 20210215
